FAERS Safety Report 13934521 (Version 1)
Quarter: 2017Q3

REPORT INFORMATION
  Report Type: Spontaneous
  Country: US (occurrence: US)
  Receive Date: 20170905
  Receipt Date: 20170905
  Transmission Date: 20171127
  Serious: No
  Sender: FDA-Public Use
  Company Number: US-TEVA-731280ACC

PATIENT
  Sex: Female

DRUGS (1)
  1. CARBILEVODTAB-A [Suspect]
     Active Substance: CARBIDOPA\LEVODOPA
     Indication: PARKINSON^S DISEASE
     Dosage: 25 MG/ 100 MG
     Dates: start: 20161221

REACTIONS (2)
  - Drug ineffective [Unknown]
  - Product substitution issue [Unknown]

NARRATIVE: CASE EVENT DATE: 2016
